FAERS Safety Report 19380081 (Version 1)
Quarter: 2021Q2

REPORT INFORMATION
  Report Type: Spontaneous
  Country: US (occurrence: US)
  Receive Date: 20210607
  Receipt Date: 20210607
  Transmission Date: 20210717
  Serious: Yes (Hospitalization, Other)
  Sender: FDA-Public Use
  Company Number: US-AMGEN-USASP2021085078

PATIENT

DRUGS (1)
  1. NEUPOGEN [Suspect]
     Active Substance: FILGRASTIM
     Indication: ALLOGENIC STEM CELL TRANSPLANTATION
     Dosage: 6 MICROGRAM/KILOGRAM, Q12H
     Route: 058

REACTIONS (18)
  - White blood cell count increased [Unknown]
  - Blood potassium decreased [Unknown]
  - Blood magnesium decreased [Unknown]
  - Local reaction [Unknown]
  - Injection site reaction [Unknown]
  - Fatigue [Recovered/Resolved]
  - Myalgia [Unknown]
  - Inadequate diet [Unknown]
  - Thrombophlebitis superficial [Recovered/Resolved]
  - Postoperative wound complication [Recovered/Resolved]
  - Nausea [Unknown]
  - Blood alkaline phosphatase increased [Unknown]
  - Headache [Recovered/Resolved]
  - Procedural pain [Recovered/Resolved]
  - Leukocytosis [Unknown]
  - Bone pain [Recovered/Resolved]
  - Thrombocytopenia [Recovered/Resolved]
  - Blood lactate dehydrogenase increased [Unknown]
